FAERS Safety Report 6439224-0 (Version None)
Quarter: 2009Q4

REPORT INFORMATION
  Report Type: 
  Country: None (occurrence: None)
  Receive Date: 20091111
  Receipt Date: 20091111
  Transmission Date: 20100525
  Serious: Yes (Hospitalization)
  Sender: FDA-Public Use
  Company Number: None

PATIENT
  Sex: Female
  Weight: 71.8 kg

DRUGS (5)
  1. ABRAXANE [Suspect]
     Indication: BREAST CANCER METASTATIC
     Dosage: 100 MG/M2 WEEKLY IV DRIP
     Route: 041
     Dates: start: 20091021, end: 20091104
  2. COLACE [Concomitant]
  3. MS CONTIN [Concomitant]
  4. LEXAPRO [Concomitant]
  5. ZOFRAN [Concomitant]

REACTIONS (4)
  - CHILLS [None]
  - NAUSEA [None]
  - PYREXIA [None]
  - VOMITING [None]
